FAERS Safety Report 8482790 (Version 8)
Quarter: 2012Q4

REPORT INFORMATION
  Report Type: 
  Country: US (occurrence: US)
  Receive Date: 20120329
  Receipt Date: 20121102
  Transmission Date: 20130627
  Serious: Yes (Hospitalization, Disabling, Other)
  Sender: FDA-Public Use
  Company Number: US-009507513-1203USA03482

PATIENT

DRUGS (7)
  1. FOSAMAX [Suspect]
     Indication: OSTEOPOROSIS
     Dosage: 5 mg, qd
     Route: 048
     Dates: start: 19971103
  2. FOSAMAX [Suspect]
     Dosage: 10 mg, UNK
     Route: 048
     Dates: start: 19980601, end: 20010105
  3. FOSAMAX [Suspect]
     Dosage: 70 mg, UNK
     Route: 048
     Dates: start: 20010118, end: 20071001
  4. ALENDRONATE SODIUM [Suspect]
     Route: 048
  5. PHENOBARBITAL [Concomitant]
     Indication: CONVULSION
     Dosage: 150 mg, qd
     Dates: start: 1997
  6. MIACALCIN [Concomitant]
     Indication: OSTEOPOROSIS
     Dates: start: 2001, end: 2007
  7. LAMICTAL [Concomitant]
     Indication: CONVULSION
     Dates: start: 20000101

REACTIONS (62)
  - Hip fracture [Unknown]
  - Osteoporosis [Unknown]
  - Stress fracture [Unknown]
  - Femur fracture [Unknown]
  - Low turnover osteopathy [Unknown]
  - Eye disorder [Unknown]
  - Coronary artery disease [Unknown]
  - Myocardial infarction [Unknown]
  - Cataract [Unknown]
  - Bradycardia [Unknown]
  - Road traffic accident [Unknown]
  - Fall [Unknown]
  - Anaemia postoperative [Unknown]
  - Open reduction of fracture [Unknown]
  - Pulmonary embolism [Unknown]
  - Dyspnoea exertional [Unknown]
  - Nausea [Unknown]
  - Heart rate increased [Unknown]
  - Adverse event [Unknown]
  - Drug intolerance [Unknown]
  - Weight increased [Unknown]
  - Blood cholesterol increased [Unknown]
  - Hypertension [Unknown]
  - Lumbar vertebral fracture [Unknown]
  - Hypoxia [Unknown]
  - Hypotension [Unknown]
  - Vertigo positional [Unknown]
  - Lumbar spinal stenosis [Unknown]
  - Back disorder [Unknown]
  - Urinary tract infection [Unknown]
  - Anxiety [Unknown]
  - Rib fracture [Unknown]
  - Cardiomyopathy [Unknown]
  - Cough [Unknown]
  - Intentional drug misuse [Unknown]
  - Vision blurred [Unknown]
  - Hyperhidrosis [Unknown]
  - Kyphosis [Unknown]
  - Compression fracture [Unknown]
  - Decreased appetite [Unknown]
  - Troponin I increased [Unknown]
  - Syncope [Unknown]
  - Dyspnoea [Unknown]
  - Depression [Unknown]
  - Irritable bowel syndrome [Unknown]
  - Cardiac failure congestive [Unknown]
  - Lethargy [Unknown]
  - Thrombosis [Unknown]
  - Dry mouth [Unknown]
  - Angina pectoris [Unknown]
  - Vaginal haemorrhage [Unknown]
  - Hypothyroidism [Unknown]
  - Lichen planus [Unknown]
  - Atrophy [Unknown]
  - Vaginal infection [Unknown]
  - Pallor [Unknown]
  - Asthenia [Unknown]
  - Constipation [Unknown]
  - Dizziness [Unknown]
  - Vomiting [Unknown]
  - Back pain [Not Recovered/Not Resolved]
  - Diarrhoea [Unknown]
